FAERS Safety Report 8193025-4 (Version None)
Quarter: 2012Q1

REPORT INFORMATION
  Report Type: 
  Country: None (occurrence: None)
  Receive Date: 20120221
  Receipt Date: 20111101
  Transmission Date: 20120608
  Serious: No
  Sender: FDA-Public Use
  Company Number: 1000025114

PATIENT
  Age: 55 Year
  Sex: Female

DRUGS (5)
  1. KLONOPIN [Concomitant]
  2. VISTARIL CAP [Concomitant]
  3. VIIBRYD [Suspect]
     Indication: MAJOR DEPRESSION
     Dosage: 10 MG (10 MG,1 IN 1 D),ORAL: 20 MG (20 MG,1 IN 1 D),ORAL
     Route: 048
     Dates: start: 20111025
  4. VIIBRYD [Suspect]
     Indication: MAJOR DEPRESSION
     Dosage: 10 MG (10 MG,1 IN 1 D),ORAL: 20 MG (20 MG,1 IN 1 D),ORAL
     Route: 048
     Dates: start: 20111018, end: 20111024
  5. SUBOXONE (TEMGESIC-NX) [Concomitant]

REACTIONS (6)
  - PYREXIA [None]
  - NAUSEA [None]
  - HEADACHE [None]
  - DIARRHOEA [None]
  - DECREASED APPETITE [None]
  - TREMOR [None]
